FAERS Safety Report 9447731 (Version 1)
Quarter: 2013Q3

REPORT INFORMATION
  Report Type: Spontaneous
  Country: US (occurrence: US)
  Receive Date: 20130808
  Receipt Date: 20130808
  Transmission Date: 20140515
  Serious: No
  Sender: FDA-Public Use
  Company Number: US-009507513-1307USA016913

PATIENT
  Age: 56 Year
  Sex: Female

DRUGS (1)
  1. COZAAR [Suspect]
     Indication: BLOOD PRESSURE MANAGEMENT
     Dosage: 50 MG, QAM
     Route: 048
     Dates: start: 20130621

REACTIONS (6)
  - Wheezing [Unknown]
  - Sinus disorder [Unknown]
  - Expired drug administered [Unknown]
  - Nasal congestion [Unknown]
  - Drug ineffective [Unknown]
  - Cough [Unknown]
